FAERS Safety Report 7770690 (Version 4)
Quarter: 2014Q4

REPORT INFORMATION
  Report Type: Spontaneous
  Country: US (occurrence: US)
  Receive Date: 20110124
  Receipt Date: 20141201
  Transmission Date: 20150529
  Serious: Yes (Hospitalization)
  Sender: FDA-Public Use
  Company Number: US-BAYER-2011-006786

PATIENT
  Age: 43 Year
  Sex: Female
  Weight: 81.63 kg

DRUGS (10)
  1. SUCRALFATE. [Concomitant]
     Active Substance: SUCRALFATE
  2. ENOXAPARIN [Concomitant]
     Active Substance: ENOXAPARIN
  3. TRAMADOL [Concomitant]
     Active Substance: TRAMADOL
  4. LEVOTHYROXINE [Concomitant]
     Active Substance: LEVOTHYROXINE
     Indication: HYPOTHYROIDISM
     Dosage: 0.015 MG, UNK
     Dates: start: 200604
  5. PROTONIX [Concomitant]
     Active Substance: PANTOPRAZOLE SODIUM
  6. DOXYCYCLINE. [Concomitant]
     Active Substance: DOXYCYCLINE
  7. YAZ [Suspect]
     Active Substance: DROSPIRENONE\ETHINYL ESTRADIOL
     Indication: MENORRHAGIA
     Dosage: UNK
     Route: 048
     Dates: start: 20080417, end: 20090222
  8. CONCEPTROL [Concomitant]
     Active Substance: NONOXYNOL-9
     Dosage: UNK
     Dates: start: 2009
  9. AMOXICILLIN. [Concomitant]
     Active Substance: AMOXICILLIN
  10. ZANTAC [Concomitant]
     Active Substance: RANITIDINE HYDROCHLORIDE

REACTIONS (9)
  - Splenic vein thrombosis [None]
  - Anxiety [None]
  - Emotional distress [None]
  - Injury [None]
  - Chest pain [None]
  - Abdominal distension [None]
  - Portal vein thrombosis [None]
  - Eructation [None]
  - Mesenteric vein thrombosis [None]

NARRATIVE: CASE EVENT DATE: 20090714
